FAERS Safety Report 5208525-6 (Version None)
Quarter: 2007Q1

REPORT INFORMATION
  Report Type: 
  Country: None (occurrence: None)
  Receive Date: 20070115
  Receipt Date: 20070110
  Transmission Date: 20070707
  Serious: Yes (Hospitalization)
  Sender: FDA-Public Use
  Company Number: US-ROXANE LABORATORIES, INC-2007-BP-00438RO

PATIENT
  Age: 7 Year
  Sex: Female

DRUGS (4)
  1. METHOTREXATE [Suspect]
     Indication: JUVENILE ARTHRITIS
     Dosage: 12.5 MG/WEEK
     Route: 048
  2. METHOTREXATE [Suspect]
     Dosage: 15 MG/WEEK
     Route: 048
  3. PREDNISONE TAB [Suspect]
     Indication: JUVENILE ARTHRITIS
     Dosage: 10 MG QD THEN TAPER TO OFF
  4. NAPROXEN [Suspect]
     Indication: JUVENILE ARTHRITIS
     Dosage: 250 MG BID

REACTIONS (11)
  - ALANINE AMINOTRANSFERASE INCREASED [None]
  - COUGH [None]
  - GRANULOMA [None]
  - HISTOPLASMOSIS [None]
  - LYMPHADENOPATHY [None]
  - NODULE [None]
  - PHARYNGOLARYNGEAL PAIN [None]
  - PYREXIA [None]
  - SPLENOMEGALY [None]
  - URINE ANALYSIS ABNORMAL [None]
  - WEIGHT DECREASED [None]
